FAERS Safety Report 8907451 (Version 1)
Quarter: 2012Q4

REPORT INFORMATION
  Report Type: 
  Country: US (occurrence: US)
  Receive Date: 20121114
  Receipt Date: 20121114
  Transmission Date: 20130627
  Serious: Yes (Other)
  Sender: FDA-Public Use
  Company Number: PHEH2012US017053

PATIENT
  Age: 48 Year
  Sex: Female
  Weight: 116.1 kg

DRUGS (1)
  1. GILENYA [Suspect]
     Indication: RELAPSING-REMITTING MULTIPLE SCLEROSIS
     Dosage: 0.5 mg, QD
     Route: 048
     Dates: start: 20120731, end: 20120824

REACTIONS (5)
  - Uveitis [Unknown]
  - Macular oedema [Recovered/Resolved]
  - Retinal oedema [Recovering/Resolving]
  - Vision blurred [Recovering/Resolving]
  - Colour blindness acquired [Recovering/Resolving]
